FAERS Safety Report 6191217-7 (Version None)
Quarter: 2009Q2

REPORT INFORMATION
  Report Type: 
  Country: None (occurrence: None)
  Receive Date: 20090515
  Receipt Date: 20090507
  Transmission Date: 20091009
  Serious: Yes (Hospitalization)
  Sender: FDA-Public Use
  Company Number: AU-JNJFOC-20090500804

PATIENT
  Sex: Male

DRUGS (27)
  1. GOLIMUMAB [Suspect]
     Route: 058
  2. GOLIMUMAB [Suspect]
     Route: 058
  3. GOLIMUMAB [Suspect]
     Route: 058
  4. GOLIMUMAB [Suspect]
     Route: 058
  5. GOLIMUMAB [Suspect]
     Indication: RHEUMATOID ARTHRITIS
     Route: 058
  6. GOLIMUMAB [Suspect]
     Route: 042
  7. GOLIMUMAB [Suspect]
     Route: 042
  8. GOLIMUMAB [Suspect]
     Route: 042
  9. GOLIMUMAB [Suspect]
     Route: 042
  10. GOLIMUMAB [Suspect]
     Route: 042
  11. GOLIMUMAB [Suspect]
     Route: 042
  12. GOLIMUMAB [Suspect]
     Route: 042
  13. PLACEBO [Suspect]
     Indication: RHEUMATOID ARTHRITIS
     Route: 042
  14. METHOTREXATE [Suspect]
     Route: 048
  15. METHOTREXATE [Suspect]
     Indication: RHEUMATOID ARTHRITIS
     Route: 048
  16. PLACEBO [Suspect]
     Route: 048
  17. METHOTREXATE [Suspect]
     Route: 048
  18. METHOTREXATE [Suspect]
     Route: 048
  19. ALENDRONATE SODIUM [Concomitant]
     Indication: OSTEOPOROSIS
     Route: 048
  20. ASPIRIN [Concomitant]
     Route: 048
  21. CALCIUM CARBONATE [Concomitant]
     Indication: OSTEOPOROSIS
     Route: 048
  22. FOLIC ACID [Concomitant]
     Indication: RHEUMATOID ARTHRITIS
     Route: 048
  23. METOCLOPRAMIDE [Concomitant]
     Route: 048
  24. METOPROLOL [Concomitant]
  25. PERINDOPRIL [Concomitant]
     Indication: HYPERTENSION
     Route: 048
  26. PRAVASTATIN [Concomitant]
     Indication: HYPERCHOLESTEROLAEMIA
     Route: 048
  27. PREDNISOLONE [Concomitant]
     Indication: RHEUMATOID ARTHRITIS
     Route: 048

REACTIONS (1)
  - PNEUMONIA [None]
